FAERS Safety Report 5934166-9 (Version None)
Quarter: 2008Q4

REPORT INFORMATION
  Report Type: 
  Country: None (occurrence: None)
  Receive Date: 20081029
  Receipt Date: 20081024
  Transmission Date: 20090506
  Serious: Yes (Hospitalization)
  Sender: FDA-Public Use
  Company Number: B0536684A

PATIENT
  Age: 33 Year
  Sex: Male

DRUGS (12)
  1. PAXIL [Suspect]
     Indication: DEPRESSION
     Dosage: 40MG TWICE PER DAY
     Route: 048
     Dates: start: 20080227, end: 20080904
  2. SEROQUEL [Suspect]
     Indication: SCHIZOPHRENIA
     Dosage: 200MG THREE TIMES PER DAY
     Route: 048
     Dates: start: 20080107, end: 20080904
  3. ABILIFY [Suspect]
     Indication: SCHIZOPHRENIA
     Dosage: 6MG THREE TIMES PER DAY
     Route: 048
     Dates: start: 20080702, end: 20080709
  4. PAXIL [Suspect]
     Dosage: 10MG PER DAY
     Route: 048
     Dates: start: 20080901
  5. SEROQUEL [Suspect]
     Dosage: 75MG TWICE PER DAY
     Route: 048
     Dates: start: 20080901
  6. DORAL [Concomitant]
     Indication: INSOMNIA
     Dosage: 15MG PER DAY
     Route: 048
     Dates: start: 20080709, end: 20080904
  7. AKINETON [Concomitant]
     Indication: PARKINSONISM
     Dosage: 9MG PER DAY
     Route: 048
     Dates: start: 20080403, end: 20080807
  8. UNKNOWN DRUG [Concomitant]
     Route: 048
     Dates: start: 20080701
  9. TOLEDOMIN [Concomitant]
     Dosage: 30MG PER DAY
     Route: 048
     Dates: start: 20080901
  10. LULLAN [Concomitant]
     Dosage: 16MG PER DAY
     Route: 048
     Dates: start: 20080901
  11. SILECE [Concomitant]
     Dosage: 2MG PER DAY
     Route: 048
     Dates: start: 20080901
  12. ROHYPNOL [Concomitant]
     Route: 048
     Dates: start: 20080901

REACTIONS (16)
  - ALANINE AMINOTRANSFERASE INCREASED [None]
  - ASPARTATE AMINOTRANSFERASE INCREASED [None]
  - BLOOD BILIRUBIN INCREASED [None]
  - BLOOD CHLORIDE DECREASED [None]
  - BLOOD GLUCOSE INCREASED [None]
  - BLOOD LACTATE DEHYDROGENASE INCREASED [None]
  - EXTRAPYRAMIDAL DISORDER [None]
  - GAMMA-GLUTAMYLTRANSFERASE INCREASED [None]
  - JAUNDICE [None]
  - LIVER DISORDER [None]
  - MEAN CELL HAEMOGLOBIN CONCENTRATION INCREASED [None]
  - OCULAR ICTERUS [None]
  - PLATELET COUNT DECREASED [None]
  - PROTEIN TOTAL DECREASED [None]
  - TRI-IODOTHYRONINE FREE DECREASED [None]
  - YELLOW SKIN [None]
